FAERS Safety Report 14277320 (Version 2)
Quarter: 2018Q4

REPORT INFORMATION
  Report Type: Spontaneous
  Country: US (occurrence: US)
  Receive Date: 20171211
  Receipt Date: 20181214
  Transmission Date: 20190204
  Serious: Yes (Hospitalization, Other)
  Sender: FDA-Public Use
  Company Number: US-OTSUKA-2017_018900

PATIENT
  Age: 40 Year
  Sex: Male

DRUGS (9)
  1. PROPECIA [Concomitant]
     Active Substance: FINASTERIDE
     Indication: PRODUCT USED FOR UNKNOWN INDICATION
     Dosage: 1 MG, QD
     Route: 048
  2. PROZAC [Concomitant]
     Active Substance: FLUOXETINE HYDROCHLORIDE
     Indication: PRODUCT USED FOR UNKNOWN INDICATION
     Dosage: 20 MG, QM
     Route: 048
  3. PRILOSEC [Concomitant]
     Active Substance: OMEPRAZOLE MAGNESIUM
     Indication: PRODUCT USED FOR UNKNOWN INDICATION
     Dosage: 20 MG, QD
     Route: 065
  4. DIPLIN [Concomitant]
     Indication: PRODUCT USED FOR UNKNOWN INDICATION
     Dosage: 15 MG, QD
     Route: 065
  5. FISH OIL [Concomitant]
     Active Substance: FISH OIL
     Indication: PRODUCT USED FOR UNKNOWN INDICATION
     Dosage: 2 DF, QD
     Route: 065
  6. FLUOXETINE [Concomitant]
     Active Substance: FLUOXETINE HYDROCHLORIDE
     Indication: PRODUCT USED FOR UNKNOWN INDICATION
     Dosage: 40 MG, QD
     Route: 048
  7. ABILIFY [Suspect]
     Active Substance: ARIPIPRAZOLE
     Indication: AFFECTIVE DISORDER
     Dosage: 1 DF, UNK (1 DF= 5MG, 7MG, 7.5MG, 2.5MG, 2MG AND 4MG)
     Route: 065
     Dates: start: 20110211, end: 201510
  8. LAMICTAL [Concomitant]
     Active Substance: LAMOTRIGINE
     Indication: PRODUCT USED FOR UNKNOWN INDICATION
     Dosage: 20 MG, QD
     Route: 048
  9. VITAMIN D [Concomitant]
     Active Substance: CHOLECALCIFEROL
     Indication: PRODUCT USED FOR UNKNOWN INDICATION
     Dosage: 50000 IU, QW
     Route: 065
     Dates: start: 20121107

REACTIONS (34)
  - Obsessive-compulsive disorder [Not Recovered/Not Resolved]
  - Gambling disorder [Unknown]
  - Suicidal ideation [Unknown]
  - Major depression [Unknown]
  - Emotional distress [Unknown]
  - Hypercholesterolaemia [Unknown]
  - Sinus disorder [Unknown]
  - Generalised anxiety disorder [Unknown]
  - Injury [Unknown]
  - Alanine aminotransferase increased [Unknown]
  - Anhedonia [Unknown]
  - Economic problem [Unknown]
  - Brain injury [Unknown]
  - Symptom recurrence [Unknown]
  - Low density lipoprotein increased [Unknown]
  - Gambling [Recovered/Resolved]
  - Sexual dysfunction [Unknown]
  - Disturbance in attention [Unknown]
  - Weight increased [Unknown]
  - Mental disorder [Unknown]
  - Suicide attempt [Unknown]
  - Drug dependence [Unknown]
  - Condition aggravated [Unknown]
  - Decreased appetite [Unknown]
  - Blood cholesterol increased [Unknown]
  - Sleep apnoea syndrome [Unknown]
  - Persistent depressive disorder [Unknown]
  - Blood triglycerides increased [Unknown]
  - Aspartate aminotransferase increased [Unknown]
  - Impulse-control disorder [Unknown]
  - Nightmare [Unknown]
  - Apathy [Unknown]
  - Anxiety [Unknown]
  - Product use in unapproved indication [Unknown]

NARRATIVE: CASE EVENT DATE: 201102
